FAERS Safety Report 5756272-4 (Version None)
Quarter: 2008Q2

REPORT INFORMATION
  Report Type: 
  Country: None (occurrence: None)
  Receive Date: 20080602
  Receipt Date: 20080521
  Transmission Date: 20081010
  Serious: Yes (Other)
  Sender: FDA-Public Use
  Company Number: US-PFIZER INC-2008044722

PATIENT
  Sex: Female
  Weight: 61.363 kg

DRUGS (2)
  1. CHANTIX [Suspect]
     Indication: SMOKING CESSATION THERAPY
  2. ALLEGRA-D [Concomitant]
     Indication: SEASONAL ALLERGY

REACTIONS (5)
  - ACCIDENT [None]
  - ILL-DEFINED DISORDER [None]
  - IMPAIRED DRIVING ABILITY [None]
  - LETHARGY [None]
  - SOMNOLENCE [None]
